FAERS Safety Report 4762397-2 (Version None)
Quarter: 2005Q3

REPORT INFORMATION
  Report Type: 
  Country: None (occurrence: None)
  Receive Date: 20050901
  Receipt Date: 20050523
  Transmission Date: 20060218
  Serious: No
  Sender: FDA-Public Use
  Company Number: 200511031BWH

PATIENT
  Age: 61 Year
  Sex: Male

DRUGS (7)
  1. LEVITRA [Suspect]
     Indication: ERECTILE DYSFUNCTION
     Dosage: 20 MG, QD, ORAL
     Route: 048
     Dates: start: 20050520
  2. ACIPHEX [Concomitant]
  3. INDOMETHACIN [Concomitant]
  4. NEURONTIN [Concomitant]
  5. TOPROL-XL [Concomitant]
  6. VYTORIN [Concomitant]
  7. ASPIRIN [Concomitant]

REACTIONS (1)
  - ERECTILE DYSFUNCTION [None]
